FAERS Safety Report 13526906 (Version 1)
Quarter: 2017Q2

REPORT INFORMATION
  Report Type: Spontaneous
  Country: US (occurrence: US)
  Receive Date: 20170509
  Receipt Date: 20170509
  Transmission Date: 20170830
  Serious: Yes (Other)
  Sender: FDA-Public Use
  Company Number: US-THE MEDICINES COMPANY-US-MDCO-17-00217

PATIENT

DRUGS (1)
  1. ORBACTIV [Suspect]
     Active Substance: ORITAVANCIN
     Indication: PRODUCT USED FOR UNKNOWN INDICATION
     Dosage: NOT REPORTED
     Route: 041

REACTIONS (3)
  - Urticaria [Recovered/Resolved]
  - Respiratory depression [Recovered/Resolved]
  - Anaphylactic reaction [Recovered/Resolved]
